FAERS Safety Report 10572693 (Version 1)
Quarter: 2014Q4

REPORT INFORMATION
  Report Type: Spontaneous
  Country: US (occurrence: None)
  Receive Date: 20141106
  Receipt Date: 20141106
  Transmission Date: 20150529
  Serious: Yes (Hospitalization)
  Sender: FDA-Public Use
  Company Number: VAL_03533_2014

PATIENT
  Sex: Male

DRUGS (7)
  1. CYSTAGON [Concomitant]
     Active Substance: CYSTEAMINE BITARTRATE
  2. ZANTAC [Concomitant]
     Active Substance: RANITIDINE HYDROCHLORIDE
  3. BICITRA /02399901/ [Concomitant]
  4. POLYCITRA /00158701/ [Concomitant]
  5. EPOGEN [Concomitant]
     Active Substance: ERYTHROPOIETIN
  6. IRON [Concomitant]
     Active Substance: IRON
  7. CALCITRIOL. [Suspect]
     Active Substance: CALCITRIOL
     Indication: PRODUCT USED FOR UNKNOWN INDICATION
     Dosage: EVERY MONDAY, WEDNESDAY, AND FRIDAY

REACTIONS (2)
  - Muscle tightness [None]
  - Gastroenteritis viral [None]
